FAERS Safety Report 25551174 (Version 1)
Quarter: 2025Q3

REPORT INFORMATION
  Report Type: Spontaneous
  Country: CA (occurrence: CA)
  Receive Date: 20250714
  Receipt Date: 20250714
  Transmission Date: 20251021
  Serious: Yes (Other)
  Sender: MERCK SHARP & DOHME LLC
  Company Number: CA-AstrazenecaRSG-1006-D7632C00001(Prod)000001

PATIENT
  Age: 77 Year
  Sex: Female
  Weight: 69 kg

DRUGS (6)
  1. PEMBROLIZUMAB [Suspect]
     Active Substance: PEMBROLIZUMAB
     Indication: Non-small cell lung cancer
     Route: 050
     Dates: start: 20250523, end: 20250612
  2. ERGOCALCIFEROL [Concomitant]
     Active Substance: ERGOCALCIFEROL
     Indication: Osteoporosis
     Dosage: 10000 INTERNATIONAL UNIT, 1 TIME PER WEEK
     Route: 050
     Dates: start: 1993
  3. LEVOTHYROXINE SODIUM [Concomitant]
     Active Substance: LEVOTHYROXINE SODIUM
     Indication: Hypothyroidism
     Dosage: 75 MICROGRAM, QD
     Route: 050
     Dates: start: 2005
  4. IRBESARTAN [Concomitant]
     Active Substance: IRBESARTAN
     Indication: Hypertension
     Dosage: 75 MILLIGRAM, QD
     Route: 050
     Dates: start: 2018
  5. CALCIUM [CALCIUM CARBONATE;COLECALCIFEROL;INULIN] [Concomitant]
     Indication: Osteoporosis
     Dosage: 500 MILLIGRAM, QD
     Route: 050
     Dates: start: 1993
  6. LEVETIRACETAM [Concomitant]
     Active Substance: LEVETIRACETAM
     Indication: Epilepsy
     Dosage: 500 MILLIGRAM, BID
     Route: 050
     Dates: start: 2017

REACTIONS (1)
  - Pulmonary embolism [Not Recovered/Not Resolved]

NARRATIVE: CASE EVENT DATE: 20250626
